FAERS Safety Report 24361630 (Version 3)
Quarter: 2024Q4

REPORT INFORMATION
  Report Type: Spontaneous
  Country: US (occurrence: US)
  Receive Date: 20240925
  Receipt Date: 20241129
  Transmission Date: 20250115
  Serious: Yes (Other)
  Sender: BAYER HEALTHCARE PHARMACEUTICALS INC.
  Company Number: US-BAYER-2024A135112

PATIENT
  Age: 5 Year
  Sex: Male
  Weight: 16.327 kg

DRUGS (5)
  1. KOVALTRY [Suspect]
     Active Substance: ANTIHEMOPHILIC FACTOR, HUMAN RECOMBINANT
     Indication: Factor VIII deficiency
     Dosage: 250 U, PRN
     Route: 042
     Dates: start: 202310
  2. KOVALTRY [Suspect]
     Active Substance: ANTIHEMOPHILIC FACTOR, HUMAN RECOMBINANT
     Indication: Factor VIII deficiency
     Dosage: 500 U, PRN
     Route: 042
  3. KOVALTRY [Suspect]
     Active Substance: ANTIHEMOPHILIC FACTOR, HUMAN RECOMBINANT
     Indication: Factor VIII deficiency
     Dosage: 750 U, PRN
     Route: 042
     Dates: start: 202005
  4. HEMLIBRA [Concomitant]
     Active Substance: EMICIZUMAB-KXWH
     Indication: Prophylaxis
     Dosage: UNK
  5. AMINOCAPROIC ACID [Concomitant]
     Active Substance: AMINOCAPROIC ACID
     Dosage: UNK
     Route: 048

REACTIONS (10)
  - Haemarthrosis [None]
  - Fall [None]
  - Haemorrhage [None]
  - Viral infection [None]
  - Pyrexia [None]
  - Tremor [None]
  - Weight increased [None]
  - Fall [None]
  - Ear injury [None]
  - Ear swelling [None]

NARRATIVE: CASE EVENT DATE: 20240919
